FAERS Safety Report 9403636 (Version 2)
Quarter: 2013Q4

REPORT INFORMATION
  Report Type: Report from Study
  Country: CA (occurrence: CA)
  Receive Date: 20130717
  Receipt Date: 20131008
  Transmission Date: 20140711
  Serious: Yes (Other)
  Sender: FDA-Public Use
  Company Number: CA-ROCHE-1247261

PATIENT
  Age: 67 Year
  Sex: Female
  Weight: 77.1 kg

DRUGS (10)
  1. RITUXAN [Suspect]
     Indication: RHEUMATOID ARTHRITIS
     Route: 042
     Dates: start: 20121119
  2. TYLENOL #1 (CANADA) [Concomitant]
     Indication: PREMEDICATION
     Route: 048
     Dates: start: 20121119
  3. BENADRYL (CANADA) [Concomitant]
     Indication: PREMEDICATION
     Route: 048
     Dates: start: 20121119
  4. METHYLPREDNISOLONE [Concomitant]
     Indication: PREMEDICATION
     Route: 042
     Dates: start: 20121119
  5. ELTROXIN [Concomitant]
  6. PAROXETINE [Concomitant]
  7. RAMIPRIL [Concomitant]
  8. VITAMIN B12 [Concomitant]
  9. ASA [Concomitant]
     Route: 065
  10. ALEVE [Concomitant]
     Dosage: LIQUID GELS
     Route: 065

REACTIONS (1)
  - Facial operation [Unknown]
